FAERS Safety Report 16258835 (Version 1)
Quarter: 2019Q2

REPORT INFORMATION
  Report Type: Spontaneous
  Country: FR (occurrence: FR)
  Receive Date: 20190501
  Receipt Date: 20190501
  Transmission Date: 20190711
  Serious: Yes (Other)
  Sender: FDA-Public Use
  Company Number: FR-AUROBINDO-AUR-APL-2019-022278

PATIENT

DRUGS (2)
  1. TADALAFIL FILM COATED TABLETS [Suspect]
     Active Substance: TADALAFIL
     Indication: PROSTATIC DISORDER
     Dosage: UNK
     Route: 065
  2. TADALAFIL FILM COATED TABLETS [Suspect]
     Active Substance: TADALAFIL
     Indication: ERECTILE DYSFUNCTION
     Dosage: 5 MILLIGRAM, ONCE A DAY
     Route: 065
     Dates: start: 20180423, end: 20180508

REACTIONS (3)
  - Back pain [Recovering/Resolving]
  - Haematuria [Recovering/Resolving]
  - Renal colic [Recovering/Resolving]

NARRATIVE: CASE EVENT DATE: 20180508
